FAERS Safety Report 23718614 (Version 6)
Quarter: 2025Q3

REPORT INFORMATION
  Report Type: Spontaneous
  Country: CA (occurrence: CA)
  Receive Date: 20240408
  Receipt Date: 20250716
  Transmission Date: 20251021
  Serious: Yes (Other)
  Sender: PFIZER
  Company Number: CA-PFIZER INC-202400077576

PATIENT
  Age: 59 Year
  Sex: Female

DRUGS (5)
  1. ABRILADA [Suspect]
     Active Substance: ADALIMUMAB-AFZB
     Indication: Crohn^s disease
     Route: 058
     Dates: start: 20230525, end: 202404
  2. ABRILADA [Suspect]
     Active Substance: ADALIMUMAB-AFZB
     Dosage: 40 MG, WEEKLY
     Route: 058
     Dates: start: 20240416
  3. ABRILADA [Suspect]
     Active Substance: ADALIMUMAB-AFZB
     Dosage: 40 MG, WEEKLY
     Route: 058
     Dates: start: 20240423
  4. ABRILADA [Suspect]
     Active Substance: ADALIMUMAB-AFZB
     Dosage: 40 MG, WEEKLY
     Route: 058
     Dates: start: 20240521
  5. NEXIUM I.V. [Concomitant]
     Active Substance: ESOMEPRAZOLE SODIUM

REACTIONS (8)
  - Tibia fracture [Unknown]
  - Nosocomial infection [Recovering/Resolving]
  - Lower respiratory tract infection [Recovering/Resolving]
  - Pneumonia [Unknown]
  - Autoimmune thyroiditis [Unknown]
  - Sinusitis [Recovering/Resolving]
  - COVID-19 [Unknown]
  - Anal cyst [Unknown]
